FAERS Safety Report 12299073 (Version 1)
Quarter: 2016Q2

REPORT INFORMATION
  Report Type: Spontaneous
  Country: US (occurrence: US)
  Receive Date: 20160425
  Receipt Date: 20160425
  Transmission Date: 20160815
  Serious: Yes (Death, Other)
  Sender: FDA-Public Use
  Company Number: US-BAXTER-2016BAX020727

PATIENT
  Age: 7 Year
  Sex: Male
  Weight: 14.7 kg

DRUGS (2)
  1. PRISMASOL B22GK4/0 [Suspect]
     Active Substance: ANHYDROUS DEXTROSE\LACTIC ACID\MAGNESIUM CHLORIDE\POTASSIUM CHLORIDE\SODIUM BICARBONATE\SODIUM CHLORIDE
     Indication: HAEMODIALYSIS
     Route: 010
     Dates: start: 20160413
  2. NORMAL SALINE [Suspect]
     Active Substance: SODIUM CHLORIDE
     Indication: HAEMODIALYSIS
     Route: 010

REACTIONS (3)
  - Death [Fatal]
  - Cardiac arrest [Unknown]
  - Hypotension [Unknown]

NARRATIVE: CASE EVENT DATE: 20160414
